FAERS Safety Report 4692614-9 (Version None)
Quarter: 2005Q2

REPORT INFORMATION
  Report Type: 
  Country: None (occurrence: None)
  Receive Date: 20050617
  Receipt Date: 20041001
  Transmission Date: 20051028
  Serious: No
  Sender: FDA-Public Use
  Company Number: JP-MERCK-0410USA00660

PATIENT
  Age: 53 Year
  Sex: Male

DRUGS (6)
  1. COZAAR [Suspect]
     Indication: HYPERTENSION
     Route: 048
     Dates: start: 20040907, end: 20040930
  2. CARDENALIN [Concomitant]
     Indication: HYPERTENSION
     Route: 048
     Dates: start: 20040107, end: 20040906
  3. AMLODIN [Suspect]
     Indication: HYPERTENSION
     Route: 048
     Dates: start: 20020107
  4. ASPIRIN ALUMINUM [Suspect]
     Indication: PROPHYLAXIS
     Route: 065
     Dates: start: 20040831
  5. CONIEL [Suspect]
     Route: 048
     Dates: start: 20041012, end: 20041207
  6. BAYNAS [Concomitant]
     Indication: SEASONAL ALLERGY
     Route: 048
     Dates: start: 20040107, end: 20041012

REACTIONS (4)
  - HYPOAESTHESIA [None]
  - MYALGIA [None]
  - PAIN IN EXTREMITY [None]
  - RHABDOMYOLYSIS [None]
